FAERS Safety Report 10760865 (Version 3)
Quarter: 2015Q3

REPORT INFORMATION
  Report Type: Spontaneous
  Country: US (occurrence: US)
  Receive Date: 20150202
  Receipt Date: 20150806
  Transmission Date: 20151125
  Serious: Yes (Other)
  Sender: FDA-Public Use
  Company Number: US-MDCO-15-00025

PATIENT
  Age: 38 Year
  Sex: Female

DRUGS (2)
  1. ARGATROBAN. [Suspect]
     Active Substance: ARGATROBAN
     Indication: ANTICOAGULANT THERAPY
     Dosage: NOT REPORTED
  2. HEPARIN [Suspect]
     Active Substance: HEPARIN SODIUM
     Indication: ANTICOAGULANT THERAPY
     Dosage: NOT REPORTED

REACTIONS (3)
  - Drug ineffective [Recovered/Resolved]
  - Aortic thrombosis [Recovered/Resolved]
  - Pulmonary thrombosis [Recovered/Resolved]
